FAERS Safety Report 4430628-4 (Version None)
Quarter: 2004Q3

REPORT INFORMATION
  Report Type: 
  Country: None (occurrence: None)
  Receive Date: 20040817
  Receipt Date: 20040804
  Transmission Date: 20050211
  Serious: Yes (Other)
  Sender: FDA-Public Use
  Company Number: 2004049949

PATIENT
  Age: 63 Year
  Sex: Female

DRUGS (1)
  1. LIPITOR [Suspect]
     Indication: ILL-DEFINED DISORDER
     Dosage: ORAL
     Route: 048
     Dates: start: 20040301, end: 20040101

REACTIONS (3)
  - BLOOD CHOLESTEROL INCREASED [None]
  - GAMMA-GLUTAMYLTRANSFERASE INCREASED [None]
  - RHABDOMYOLYSIS [None]
